FAERS Safety Report 19687064 (Version 3)
Quarter: 2021Q4

REPORT INFORMATION
  Report Type: Spontaneous
  Country: US (occurrence: US)
  Receive Date: 20210811
  Receipt Date: 20211222
  Transmission Date: 20220303
  Serious: Yes (Hospitalization)
  Sender: FDA-Public Use
  Company Number: US-PFIZER INC-2021881866

PATIENT
  Age: 67 Year
  Sex: Female
  Weight: 73.94 kg

DRUGS (4)
  1. RAPAMUNE [Suspect]
     Active Substance: SIROLIMUS
     Indication: Heart transplant
     Dosage: 0.5 MG, 3X/DAY
     Route: 048
     Dates: start: 20210201
  2. RAPAMUNE [Suspect]
     Active Substance: SIROLIMUS
     Dosage: 2 MG, ALTERNATE DAY  (TAKE 2MG (4 TABLETS) ON MON/WED/FRI)
  3. RAPAMUNE [Suspect]
     Active Substance: SIROLIMUS
     Dosage: 1.5 MG, ALTERNATE DAY(1.5MG (3 TABLETS) ON TUES/THURS/SAT/SUN)
  4. GENGRAF [Concomitant]
     Active Substance: CYCLOSPORINE
     Dosage: UNK

REACTIONS (7)
  - Hernia [Recovering/Resolving]
  - Gallbladder disorder [Unknown]
  - Off label use [Unknown]
  - Product label issue [Unknown]
  - Drug level decreased [Unknown]
  - Visual impairment [Unknown]
  - Off label use [Unknown]

NARRATIVE: CASE EVENT DATE: 20210201
